FAERS Safety Report 6532404-5 (Version None)
Quarter: 2010Q1

REPORT INFORMATION
  Report Type: 
  Country: None (occurrence: None)
  Receive Date: 20100108
  Receipt Date: 20100104
  Transmission Date: 20100710
  Serious: Yes (Other)
  Sender: FDA-Public Use
  Company Number: TR-ELI_LILLY_AND_COMPANY-TR201001000137

PATIENT
  Sex: Female

DRUGS (3)
  1. HUMULIN R [Suspect]
     Indication: GESTATIONAL DIABETES
     Dosage: 104 IU, DAILY (1/D)
     Route: 058
     Dates: start: 20090915, end: 20091230
  2. HUMULIN N [Suspect]
     Indication: GESTATIONAL DIABETES
     Dosage: 36 U, 2/D
     Route: 058
     Dates: start: 20090915, end: 20091230
  3. ALFAMET [Concomitant]
     Indication: HYPERTENSION
     Dosage: UNK UNK, 3/D
     Route: 048
     Dates: start: 20090915, end: 20091230

REACTIONS (2)
  - ABORTION [None]
  - DRUG EXPOSURE DURING PREGNANCY [None]
